FAERS Safety Report 9639370 (Version 3)
Quarter: 2013Q4

REPORT INFORMATION
  Report Type: Report from Study
  Country: US (occurrence: US)
  Receive Date: 20131022
  Receipt Date: 20131127
  Transmission Date: 20140711
  Serious: Yes (Death)
  Sender: FDA-Public Use
  Company Number: US-ROCHE-1292281

PATIENT
  Age: 55 Year
  Sex: Male

DRUGS (4)
  1. BEVACIZUMAB [Suspect]
     Indication: HEPATIC CANCER
     Route: 065
     Dates: start: 20130306
  2. CAPECITABINE [Suspect]
     Indication: HEPATIC CANCER
     Route: 065
     Dates: start: 20130306, end: 20130517
  3. GEMCITABINE HCL [Concomitant]
     Route: 065
     Dates: start: 20120801, end: 20130306
  4. OXALIPLATIN [Concomitant]

REACTIONS (1)
  - Metastatic neoplasm [Fatal]
